FAERS Safety Report 12552500 (Version 2)
Quarter: 2016Q3

REPORT INFORMATION
  Report Type: Spontaneous
  Country: US (occurrence: US)
  Receive Date: 20160713
  Receipt Date: 20160805
  Transmission Date: 20161109
  Serious: No
  Sender: FDA-Public Use
  Company Number: US-PFIZER INC-2016338311

PATIENT
  Sex: Female

DRUGS (5)
  1. TERRAMYCIN [Suspect]
     Active Substance: OXYTETRACYCLINE\OXYTETRACYCLINE HYDROCHLORIDE
     Dosage: UNK
  2. CLINDAMYCIN HCL [Suspect]
     Active Substance: CLINDAMYCIN HYDROCHLORIDE
     Dosage: UNK
  3. LEUCINE [Suspect]
     Active Substance: LEUCINE
     Dosage: UNK
  4. TETANUS TOXOID ADSORBED [Suspect]
     Active Substance: CLOSTRIDIUM TETANI TOXOID ANTIGEN (FORMALDEHYDE INACTIVATED)
     Dosage: UNK
  5. TYPHOID VACCINE [Suspect]
     Active Substance: TYPHOID VACCINE
     Dosage: UNK

REACTIONS (1)
  - Drug hypersensitivity [Unknown]
